FAERS Safety Report 18199493 (Version 2)
Quarter: 2020Q3

REPORT INFORMATION
  Report Type: Spontaneous
  Country: US (occurrence: US)
  Receive Date: 20200826
  Receipt Date: 20200909
  Transmission Date: 20201103
  Serious: No
  Sender: FDA-Public Use
  Company Number: US-BIOGEN-2020BI00915613

PATIENT
  Age: 44 Year
  Sex: Female

DRUGS (1)
  1. SPINRAZA [Suspect]
     Active Substance: NUSINERSEN
     Indication: SPINAL MUSCULAR ATROPHY
     Route: 065
     Dates: start: 20200807, end: 20200807

REACTIONS (3)
  - Nausea [Recovered/Resolved]
  - Claustrophobia [Unknown]
  - Anxiety [Unknown]

NARRATIVE: CASE EVENT DATE: 20200821
